FAERS Safety Report 12926601 (Version 4)
Quarter: 2017Q2

REPORT INFORMATION
  Report Type: Spontaneous
  Country: JP (occurrence: JP)
  Receive Date: 20161109
  Receipt Date: 20170425
  Transmission Date: 20170830
  Serious: Yes (Hospitalization, Other)
  Sender: FDA-Public Use
  Company Number: JP-ALLERGAN-1675246US

PATIENT
  Age: 60 Year
  Sex: Female

DRUGS (4)
  1. ASENAPINE MALEATE - BP [Suspect]
     Active Substance: ASENAPINE MALEATE
     Indication: SCHIZOPHRENIA
     Dosage: 5 MG, BID
     Route: 060
     Dates: start: 20161018, end: 20161027
  2. CEPHARANTHINE [Concomitant]
     Active Substance: CEPHARANTHINE
     Dosage: UNK
     Dates: start: 201604, end: 20161026
  3. ADENINE [Concomitant]
     Active Substance: ADENINE
     Dosage: UNK
     Dates: start: 201604, end: 20161026
  4. SITAGLIPTIN PHOSPHATE [Concomitant]
     Active Substance: SITAGLIPTIN PHOSPHATE
     Dosage: UNK
     Dates: start: 201606

REACTIONS (4)
  - Pneumonia aspiration [Recovered/Resolved]
  - Psychotic disorder [Recovered/Resolved]
  - Extrapyramidal disorder [Recovering/Resolving]
  - Blood creatine phosphokinase increased [Recovered/Resolved]

NARRATIVE: CASE EVENT DATE: 20161021
